FAERS Safety Report 10952310 (Version 1)
Quarter: 2015Q1

REPORT INFORMATION
  Report Type: Spontaneous
  Country: US (occurrence: None)
  Receive Date: 20150324
  Receipt Date: 20150324
  Transmission Date: 20150721
  Serious: No
  Sender: FDA-Public Use
  Company Number: None

PATIENT
  Age: 55 Year
  Sex: Female
  Weight: 67 kg

DRUGS (5)
  1. CYTARABINE. [Suspect]
     Active Substance: CYTARABINE
     Dates: start: 20150205
  2. RITUXIMAB [Suspect]
     Active Substance: RITUXIMAB
     Dates: start: 20141117
  3. VINCRISTINE SULFATE. [Suspect]
     Active Substance: VINCRISTINE SULFATE
     Dates: start: 20140916
  4. METHOTREXATE [Suspect]
     Active Substance: METHOTREXATE
     Dates: start: 20141118
  5. PROCARBAZINE [Suspect]
     Active Substance: PROCARBAZINE
     Dates: start: 20141104

REACTIONS (2)
  - Neutrophil count abnormal [None]
  - Platelet disorder [None]

NARRATIVE: CASE EVENT DATE: 20150213
